FAERS Safety Report 7094275-0 (Version None)
Quarter: 2010Q4

REPORT INFORMATION
  Report Type: 
  Country: None (occurrence: None)
  Receive Date: 20101110
  Receipt Date: 20100915
  Transmission Date: 20110411
  Serious: No
  Sender: FDA-Public Use
  Company Number: US-BAYER-201021599BCC

PATIENT
  Sex: Female
  Weight: 54 kg

DRUGS (4)
  1. ALEVE [Suspect]
     Indication: PAIN
     Dosage: TOTAL DAILY DOSE: 440 MG  UNIT DOSE: 220 MG
     Route: 048
  2. ALEVE [Suspect]
     Dosage: TOTAL DAILY DOSE: 220 MG  UNIT DOSE: 220 MG
     Route: 048
     Dates: end: 20100101
  3. ZOCOR [Concomitant]
     Dosage: AS USED DOSE: UNK
     Route: 065
  4. NATURE BOUNDRY VITAMINS [Concomitant]
     Dosage: AS USED DOSE: UNK
     Route: 065

REACTIONS (2)
  - EYE HAEMORRHAGE [None]
  - PAIN [None]
